FAERS Safety Report 9343381 (Version 4)
Quarter: 2014Q1

REPORT INFORMATION
  Report Type: Report from Study
  Country: RU (occurrence: RU)
  Receive Date: 20130612
  Receipt Date: 20140127
  Transmission Date: 20141002
  Serious: Yes (Other)
  Sender: FDA-Public Use
  Company Number: RU-ROCHE-1235593

PATIENT
  Age: 55 Year
  Sex: Male
  Weight: 109 kg

DRUGS (6)
  1. AVASTIN [Suspect]
     Indication: RECTAL CANCER
     Route: 065
     Dates: start: 20120501
  2. AVASTIN [Suspect]
     Indication: METASTASES TO LUNG
     Route: 065
     Dates: end: 20140117
  3. XELODA [Suspect]
     Indication: RECTAL CANCER
     Route: 065
     Dates: start: 20120501, end: 20120815
  4. XELODA [Suspect]
     Indication: METASTASES TO LUNG
     Dosage: 1-14 DAYS
     Route: 065
     Dates: start: 20130920, end: 20131220
  5. IRINOTECAN [Concomitant]
     Indication: RECTAL CANCER
     Route: 041
     Dates: start: 20120501, end: 20120815
  6. IRINOTECAN [Concomitant]
     Indication: METASTASES TO LUNG
     Route: 041
     Dates: start: 20130523, end: 20130722

REACTIONS (1)
  - Disease progression [Not Recovered/Not Resolved]
